FAERS Safety Report 9501996 (Version 1)
Quarter: 2013Q3

REPORT INFORMATION
  Report Type: Spontaneous
  Country: IT (occurrence: IT)
  Receive Date: 20130905
  Receipt Date: 20130905
  Transmission Date: 20140515
  Serious: Yes (Hospitalization)
  Sender: FDA-Public Use
  Company Number: IT-VERTEX PHARMACEUTICALS INC-2013-009304

PATIENT
  Age: 42 Year
  Sex: Male

DRUGS (6)
  1. INCIVO [Suspect]
     Indication: CHRONIC HEPATITIS C
     Dosage: 2250 MG, QD
     Route: 048
     Dates: start: 20130601, end: 20130810
  2. PEGASYS [Concomitant]
     Indication: CHRONIC HEPATITIS C
     Dosage: SOLUTION FOR INJECTION
     Dates: start: 20130601, end: 20130810
  3. PEGASYS [Concomitant]
     Dosage: 180 ?G, UNK, SOLUTION FOR INJECTION
     Dates: start: 20130601, end: 20130810
  4. NORVASC [Concomitant]
     Indication: PRODUCT USED FOR UNKNOWN INDICATION
     Dosage: DOSAGE FORM: TABLETS
     Route: 048
  5. KARVEZIDE [Concomitant]
     Indication: PRODUCT USED FOR UNKNOWN INDICATION
     Dosage: 1 DF, UNK, TABLET
     Route: 048
  6. ZYLORIC [Concomitant]
     Indication: HYPERURICAEMIA
     Dosage: 300 MG, UNK, TABLETS
     Route: 048

REACTIONS (1)
  - Rash generalised [Recovered/Resolved]
